FAERS Safety Report 7547780-4 (Version None)
Quarter: 2011Q2

REPORT INFORMATION
  Report Type: 
  Country: None (occurrence: None)
  Receive Date: 20110615
  Receipt Date: 20110608
  Transmission Date: 20111010
  Serious: Yes (Hospitalization)
  Sender: FDA-Public Use
  Company Number: JP-AMGEN-JPNSP2011029695

PATIENT
  Sex: Female

DRUGS (1)
  1. ENBREL [Suspect]
     Indication: RHEUMATOID ARTHRITIS
     Dosage: UNK
     Route: 058
     Dates: start: 20050401

REACTIONS (6)
  - RHEUMATOID ARTHRITIS [None]
  - TOOTH LOSS [None]
  - DENTAL ALVEOLAR ANOMALY [None]
  - DEPRESSION [None]
  - PAIN [None]
  - VASCULITIS [None]
